FAERS Safety Report 19563636 (Version 1)
Quarter: 2021Q3

REPORT INFORMATION
  Report Type: Spontaneous
  Country: FR (occurrence: FR)
  Receive Date: 20210715
  Receipt Date: 20210715
  Transmission Date: 20211014
  Serious: Yes (Other)
  Sender: FDA-Public Use
  Company Number: NVSC2021FR153731

PATIENT
  Age: 68 Year
  Sex: Male
  Weight: 140 kg

DRUGS (6)
  1. ALLOPURINOL. [Suspect]
     Active Substance: ALLOPURINOL
     Indication: HYPERTENSION
     Dosage: 200 MG, QD
     Route: 048
  2. BISOPROLOL FUMARATE. [Suspect]
     Active Substance: BISOPROLOL FUMARATE
     Indication: ATRIAL FIBRILLATION
     Dosage: 10 MG, QD
     Route: 048
  3. IRBESARTAN. [Suspect]
     Active Substance: IRBESARTAN
     Indication: HYPERTENSION
     Dosage: 75 MG, QD
     Route: 048
  4. LOVENOX [Suspect]
     Active Substance: ENOXAPARIN SODIUM
     Indication: ATRIAL FIBRILLATION
     Dosage: 13000 IU, Q12H
     Route: 058
     Dates: start: 20210620
  5. PREVISCAN (PENTOXIFYLLINE) [Suspect]
     Active Substance: PENTOXIFYLLINE
     Indication: ATRIAL FIBRILLATION
     Dosage: 15 MG, QD
     Route: 048
  6. FUROSEMIDE. [Suspect]
     Active Substance: FUROSEMIDE
     Indication: HYPERTENSION
     Dosage: 40 MG, QD
     Route: 048

REACTIONS (1)
  - Blood blister [Not Recovered/Not Resolved]

NARRATIVE: CASE EVENT DATE: 20210630
